FAERS Safety Report 16406939 (Version 1)
Quarter: 2019Q2

REPORT INFORMATION
  Report Type: Spontaneous
  Country: US (occurrence: US)
  Receive Date: 20190608
  Receipt Date: 20190608
  Transmission Date: 20190711
  Serious: No
  Sender: FDA-Public Use
  Company Number: US-UNITED THERAPEUTICS-UNT-2019-009788

PATIENT
  Age: 78 Year
  Sex: Female

DRUGS (1)
  1. REMODULIN [Suspect]
     Active Substance: TREPROSTINIL
     Indication: PULMONARY ARTERIAL HYPERTENSION
     Dosage: 0.0215 ?G/KG, CONTINUING
     Route: 058
     Dates: start: 20190517

REACTIONS (4)
  - Suspected product contamination [Unknown]
  - Dizziness [Unknown]
  - Nausea [Unknown]
  - Device dislocation [Unknown]

NARRATIVE: CASE EVENT DATE: 20190603
